FAERS Safety Report 16489443 (Version 4)
Quarter: 2020Q2

REPORT INFORMATION
  Report Type: Report from Study
  Country: CO (occurrence: CO)
  Receive Date: 20190628
  Receipt Date: 20200417
  Transmission Date: 20200713
  Serious: Yes (Other)
  Sender: FDA-Public Use
  Company Number: CO-AMGEN-COLSL2019100988

PATIENT
  Age: 86 Year
  Sex: Female

DRUGS (2)
  1. NPLATE [Suspect]
     Active Substance: ROMIPLOSTIM
     Indication: IMMUNE THROMBOCYTOPENIA
     Dosage: 250 MICROGRAM, QWK
     Route: 058
     Dates: start: 20190518
  2. NPLATE [Suspect]
     Active Substance: ROMIPLOSTIM
     Dosage: 90 MICROGRAM, QWK
     Route: 058
     Dates: end: 20200102

REACTIONS (1)
  - Thrombocytosis [Recovering/Resolving]

NARRATIVE: CASE EVENT DATE: 20190531
